FAERS Safety Report 12525500 (Version 1)
Quarter: 2016Q3

REPORT INFORMATION
  Report Type: Spontaneous
  Country: US (occurrence: US)
  Receive Date: 20160704
  Receipt Date: 20160704
  Transmission Date: 20161109
  Serious: No
  Sender: FDA-Public Use
  Company Number: US-ASTRAZENECA-2016SE69253

PATIENT
  Sex: Male
  Weight: 81.6 kg

DRUGS (18)
  1. BYETTA [Suspect]
     Active Substance: EXENATIDE
     Indication: TYPE 2 DIABETES MELLITUS
     Route: 058
     Dates: start: 2005
  2. LISINOPRIL AND HYDROCHLOROTHIAZIDE [Suspect]
     Active Substance: HYDROCHLOROTHIAZIDE\LISINOPRIL
     Dosage: 10/12.5 MG,  DAILY
     Route: 048
  3. METOPROLOL SUCCINATE. [Suspect]
     Active Substance: METOPROLOL SUCCINATE
     Indication: ARRHYTHMIA
     Route: 048
     Dates: start: 201606
  4. MEGA RED FISH OIL [Concomitant]
     Indication: MULTIPLE ALLERGIES
     Route: 065
  5. VITAMIN B12 [Concomitant]
     Active Substance: CYANOCOBALAMIN
     Route: 065
  6. NEFAZODONE HCL [Concomitant]
     Indication: ANTIDEPRESSANT THERAPY
     Dosage: 150.0MG UNKNOWN
     Route: 065
  7. GLIPIZIDE. [Concomitant]
     Active Substance: GLIPIZIDE
     Indication: DIABETES MELLITUS
     Route: 065
  8. CETIRIZINE HCL [Concomitant]
     Active Substance: CETIRIZINE HYDROCHLORIDE
     Indication: HYPERSENSITIVITY
     Route: 065
  9. BAYER LOW DOSE ASPIRIN [Concomitant]
     Route: 065
  10. LEVOTHROID [Concomitant]
     Active Substance: LEVOTHYROXINE SODIUM
     Indication: THYROID THERAPY
     Route: 065
  11. WAFARIN SODIUM [Concomitant]
     Indication: ARRHYTHMIA
     Route: 065
     Dates: start: 201606
  12. DHEA [Concomitant]
     Active Substance: PRASTERONE
     Route: 065
  13. ATORVASTATIN CALCIUM. [Concomitant]
     Active Substance: ATORVASTATIN CALCIUM
     Route: 065
  14. PIOGLITAZONE. [Concomitant]
     Active Substance: PIOGLITAZONE
     Route: 065
  15. METFORMIN [Concomitant]
     Active Substance: METFORMIN HYDROCHLORIDE
     Indication: DIABETES MELLITUS
     Dosage: 850 MG
     Route: 065
     Dates: start: 2004
  16. COENZYME Q-10 [Concomitant]
     Route: 065
  17. BIOTIN [Concomitant]
     Active Substance: BIOTIN
     Route: 065
  18. VITAMIN D3 [Concomitant]
     Active Substance: CHOLECALCIFEROL
     Route: 066

REACTIONS (5)
  - Heart rate irregular [Unknown]
  - Intentional product misuse [Unknown]
  - Body height decreased [Unknown]
  - Product quality issue [Unknown]
  - Weight decreased [Unknown]
